FAERS Safety Report 6450764-0 (Version None)
Quarter: 2009Q4

REPORT INFORMATION
  Report Type: 
  Country: None (occurrence: None)
  Receive Date: 20091118
  Receipt Date: 20090610
  Transmission Date: 20100525
  Serious: Yes (Hospitalization)
  Sender: FDA-Public Use
  Company Number: 2009BI011895

PATIENT
  Age: 52 Year
  Sex: Female

DRUGS (10)
  1. TYSABRI [Suspect]
     Indication: MULTIPLE SCLEROSIS
     Dosage: 300 MG;QM;IV
     Route: 042
     Dates: start: 20070504
  2. BACLOFEN [Concomitant]
  3. SOMA [Concomitant]
  4. DOXAZOSIN [Concomitant]
  5. AMBIEN [Concomitant]
  6. ZOLOFT [Concomitant]
  7. TYLENOL (CAPLET) [Concomitant]
  8. XANAX [Concomitant]
  9. METOPROLOL [Concomitant]
  10. KLONOPIN [Concomitant]

REACTIONS (2)
  - ESCHERICHIA URINARY TRACT INFECTION [None]
  - MULTIPLE SCLEROSIS RELAPSE [None]
